FAERS Safety Report 4631418-X (Version None)
Quarter: 2005Q2

REPORT INFORMATION
  Report Type: 
  Country: None (occurrence: None)
  Receive Date: 20050407
  Receipt Date: 20050329
  Transmission Date: 20051028
  Serious: Yes (Hospitalization)
  Sender: FDA-Public Use
  Company Number: 2005UW04887

PATIENT
  Age: 94 Year
  Sex: Female

DRUGS (8)
  1. SEROQUEL [Suspect]
     Indication: DEMENTIA
     Dosage: 100 MG PO
     Route: 048
     Dates: end: 20050301
  2. ATENOLOL [Concomitant]
  3. HEPARIN [Concomitant]
  4. PROTONIX ^WYETH-AYERST^ [Concomitant]
  5. SENNA [Concomitant]
  6. COLACE [Concomitant]
  7. LACTULOSE [Concomitant]
  8. AMANTADINE [Concomitant]

REACTIONS (3)
  - BLOOD ELECTROLYTES DECREASED [None]
  - DEHYDRATION [None]
  - PNEUMONIA [None]
